FAERS Safety Report 8200809-2 (Version None)
Quarter: 2012Q1

REPORT INFORMATION
  Report Type: 
  Country: None (occurrence: None)
  Receive Date: 20120312
  Receipt Date: 20120301
  Transmission Date: 20120608
  Serious: Yes (Hospitalization)
  Sender: FDA-Public Use
  Company Number: US-SANOFI-AVENTIS-2012SA001398

PATIENT
  Age: 65 Year
  Sex: Male
  Weight: 103.4 kg

DRUGS (17)
  1. BLINDED THERAPY [Suspect]
     Dosage: DAY 1 EVERY 14 DAYS
     Route: 042
     Dates: start: 20111103, end: 20111103
  2. FLUOROURACIL [Suspect]
     Dosage: DAY 1 EVERY 14 DAYS
     Route: 040
     Dates: start: 20111103, end: 20111103
  3. ATENOLOL [Concomitant]
     Dates: start: 20080115
  4. LAMOTRIGINE [Concomitant]
     Dates: start: 20080115
  5. VITAMINS NOS [Concomitant]
     Dates: start: 20080115
  6. OXALIPLATIN [Suspect]
     Dosage: DAY 1 EVERY 14 DAYS
     Route: 041
     Dates: start: 20111103, end: 20111103
  7. FLUOROURACIL [Suspect]
     Dosage: DAY 1 EVERY 14 DAYS
     Route: 040
     Dates: start: 20111219, end: 20111219
  8. NEUPOGEN [Concomitant]
     Dates: start: 20111129
  9. FLUOROURACIL [Suspect]
     Dosage: 2400 MG/M2 OVER 46 TO 48 HOURS DAY 1 EVERY 14 DAYS
     Route: 041
     Dates: start: 20111103, end: 20111105
  10. OXALIPLATIN [Suspect]
     Dosage: DAY 1 EVERY 14 DAYS
     Route: 041
     Dates: start: 20111219, end: 20111219
  11. HYDROXYZINE [Concomitant]
     Dates: start: 20080115
  12. LEUCOVORIN CALCIUM [Suspect]
     Dosage: DAY 1 EVERY 14 DAYS
     Route: 042
     Dates: start: 20111103, end: 20111103
  13. FLUOROURACIL [Suspect]
     Dosage: 1900 MG/M2 OVER 46 TO 48 HOURS DAY 1 EVERY 14 DAYS
     Route: 041
     Dates: start: 20111219, end: 20111221
  14. SIMVASTATIN [Concomitant]
     Dates: start: 20080115
  15. BLINDED THERAPY [Suspect]
     Dosage: DAY 1 EVERY 14 DAYS
     Route: 042
     Dates: start: 20111219, end: 20111219
  16. LEUCOVORIN CALCIUM [Suspect]
     Dosage: DAY 1 EVERY 14 DAYS
     Route: 042
     Dates: start: 20111219, end: 20111219
  17. CHLORTHALIDONE [Concomitant]
     Dates: start: 20080115

REACTIONS (2)
  - ASTHMA [None]
  - NEUTROPENIA [None]
